FAERS Safety Report 4867676-6 (Version None)
Quarter: 2005Q4

REPORT INFORMATION
  Report Type: 
  Country: None (occurrence: None)
  Receive Date: 20051222
  Receipt Date: 19990928
  Transmission Date: 20060501
  Serious: Yes (Death, Hospitalization)
  Sender: FDA-Public Use
  Company Number: 8-99201-152A

PATIENT
  Age: 53 Year
  Sex: Male

DRUGS (1)
  1. MYLOTARG [Suspect]
     Indication: ACUTE MYELOID LEUKAEMIA
     Dosage: 9 MG/M2, INTRAVENOUS
     Route: 042
     Dates: start: 19990610, end: 19990624

REACTIONS (13)
  - ASPERGILLOSIS [None]
  - CATHETER RELATED INFECTION [None]
  - DYSPNOEA [None]
  - FUNGAL INFECTION [None]
  - GENERAL PHYSICAL HEALTH DETERIORATION [None]
  - HEADACHE [None]
  - MENINGITIS [None]
  - NEUTROPENIA [None]
  - OXYGEN SATURATION DECREASED [None]
  - PANCYTOPENIA [None]
  - PYREXIA [None]
  - SINUSITIS [None]
  - SINUSITIS ASPERGILLUS [None]
